FAERS Safety Report 6958994-6 (Version None)
Quarter: 2010Q3

REPORT INFORMATION
  Report Type: 
  Country: None (occurrence: None)
  Receive Date: 20100831
  Receipt Date: 20100824
  Transmission Date: 20110219
  Serious: Yes (Other)
  Sender: FDA-Public Use
  Company Number: GB-PFIZER INC-2010106840

PATIENT
  Age: 12 Year
  Sex: Female

DRUGS (4)
  1. METHYLPREDNISOLONE [Suspect]
     Indication: LIVER TRANSPLANT
     Dosage: 2 MG/KG, 1X/DAY
     Route: 042
  2. BASILIXIMAB [Suspect]
     Indication: LIVER TRANSPLANT
     Dosage: UNK
     Route: 042
  3. PROGRAF [Suspect]
     Indication: LIVER TRANSPLANT
     Dosage: 0.2 MG/KG, 1X/DAY
  4. PROGRAF [Suspect]
     Dosage: 0.1 MG/KG, 1X/DAY

REACTIONS (4)
  - DRUG LEVEL ABOVE THERAPEUTIC [None]
  - OFF LABEL USE [None]
  - PUPIL FIXED [None]
  - RENAL IMPAIRMENT [None]
